FAERS Safety Report 6915636-3 (Version None)
Quarter: 2010Q3

REPORT INFORMATION
  Report Type: 
  Country: None (occurrence: None)
  Receive Date: 20100810
  Receipt Date: 20100727
  Transmission Date: 20110219
  Serious: Yes (Hospitalization, Other)
  Sender: FDA-Public Use
  Company Number: ES-RANBAXY-2010RR-36574

PATIENT
  Age: 57 Year
  Sex: Male

DRUGS (3)
  1. IBUPROFEN [Suspect]
     Dosage: UNK
     Route: 048
     Dates: start: 20061201
  2. METAMIZOLE [Suspect]
  3. ASPIRIN [Suspect]
     Dosage: 100 MG, UNK

REACTIONS (1)
  - KOUNIS SYNDROME [None]
